FAERS Safety Report 5114777-3 (Version None)
Quarter: 2006Q3

REPORT INFORMATION
  Report Type: 
  Country: None (occurrence: None)
  Receive Date: 20060922
  Receipt Date: 20060828
  Transmission Date: 20061208
  Serious: Yes (Other)
  Sender: FDA-Public Use
  Company Number: 2006-05-2490

PATIENT
  Age: 38 Year
  Sex: Male
  Weight: 107.9561 kg

DRUGS (6)
  1. PEG-INTRON [Suspect]
     Indication: HEPATITIS C
     Dosage: 150 MCG;QW;SC
     Route: 058
     Dates: start: 20060407, end: 20060601
  2. RIBAVIRIN [Suspect]
     Indication: HEPATITIS C
     Dosage: 1200 MG;QD;PO
     Route: 048
     Dates: start: 20060407, end: 20060601
  3. AMBIEN [Concomitant]
  4. KLONOPIN [Concomitant]
  5. GLUCOPHAGE [Concomitant]
  6. BENICAR [Concomitant]

REACTIONS (13)
  - BACK PAIN [None]
  - CONVULSION [None]
  - DIARRHOEA [None]
  - HYPOAESTHESIA [None]
  - HYPOAESTHESIA FACIAL [None]
  - LOSS OF CONSCIOUSNESS [None]
  - LYMPHOMA [None]
  - PAIN [None]
  - PSEUDOLYMPHOMA [None]
  - PULMONARY MASS [None]
  - PYREXIA [None]
  - WEIGHT DECREASED [None]
  - WHITE BLOOD CELL COUNT DECREASED [None]
